FAERS Safety Report 10612822 (Version 3)
Quarter: 2014Q4

REPORT INFORMATION
  Report Type: Report from Study
  Country: BR (occurrence: BR)
  Receive Date: 20141127
  Receipt Date: 20141203
  Transmission Date: 20150529
  Serious: Yes (Death, Other)
  Sender: FDA-Public Use
  Company Number: BR-BRISTOL-MYERS SQUIBB COMPANY-20095154

PATIENT
  Age: 73 Year
  Sex: Female

DRUGS (1)
  1. ORENCIA [Suspect]
     Active Substance: ABATACEPT
     Indication: RHEUMATOID ARTHRITIS
     Dosage: 15APR13,02MAY13,22MAY13,24JUN13,14AUG13,17SEP13
     Route: 042
     Dates: end: 201310

REACTIONS (2)
  - Death [Fatal]
  - Influenza [Unknown]

NARRATIVE: CASE EVENT DATE: 201403
